FAERS Safety Report 9393435 (Version 1)
Quarter: 2013Q3

REPORT INFORMATION
  Report Type: Spontaneous
  Country: AU (occurrence: AU)
  Receive Date: 20130710
  Receipt Date: 20130710
  Transmission Date: 20140515
  Serious: Yes (Other)
  Sender: FDA-Public Use
  Company Number: PHHY2013AU072118

PATIENT
  Sex: Female

DRUGS (1)
  1. ZOLEDRONIC ACID [Suspect]
     Dosage: UNK UKN, UNK

REACTIONS (9)
  - Corneal oedema [Unknown]
  - Eye pain [Unknown]
  - Photophobia [Unknown]
  - Visual acuity reduced [Unknown]
  - Conjunctivitis [Unknown]
  - Iritis [Unknown]
  - Scleritis [Unknown]
  - Uveitis [Unknown]
  - Vision blurred [Unknown]
